FAERS Safety Report 17419978 (Version 1)
Quarter: 2020Q1

REPORT INFORMATION
  Report Type: Report from Study
  Country: US (occurrence: US)
  Receive Date: 20200214
  Receipt Date: 20200214
  Transmission Date: 20200409
  Serious: Yes (Hospitalization, Other)
  Sender: FDA-Public Use
  Company Number: US-JNJFOC-20190921370

PATIENT
  Age: 72 Year
  Sex: Female

DRUGS (2)
  1. STELARA [Suspect]
     Active Substance: USTEKINUMAB
     Indication: CROHN^S DISEASE
     Route: 058
     Dates: start: 201603, end: 20190826
  2. STELARA [Suspect]
     Active Substance: USTEKINUMAB
     Route: 058
     Dates: start: 20200131

REACTIONS (6)
  - Chronic lymphocytic leukaemia [Unknown]
  - Intestinal obstruction [Unknown]
  - Vertebral column mass [Unknown]
  - Large intestine polyp [Unknown]
  - Lymphocytic lymphoma [Unknown]
  - Spinal operation [Unknown]

NARRATIVE: CASE EVENT DATE: 201908
